FAERS Safety Report 25491583 (Version 3)
Quarter: 2025Q3

REPORT INFORMATION
  Report Type: Spontaneous
  Country: US (occurrence: US)
  Receive Date: 20250629
  Receipt Date: 20250710
  Transmission Date: 20251020
  Serious: Yes (Other)
  Sender: BAUSCH AND LOMB
  Company Number: US-BAUSCHBL-2025BNL011187

PATIENT
  Age: 44 Year
  Sex: Male

DRUGS (6)
  1. ATROPINE [Suspect]
     Active Substance: ATROPINE
     Indication: Salivary hypersecretion
     Dosage: 1-2 DROPS
     Route: 047
  2. TROSPIUM [Concomitant]
     Active Substance: TROSPIUM
     Indication: Product used for unknown indication
     Route: 048
  3. BACLOFEN [Concomitant]
     Active Substance: BACLOFEN
     Indication: Product used for unknown indication
     Route: 048
  4. DANTROLENE [Concomitant]
     Active Substance: DANTROLENE
     Indication: Product used for unknown indication
     Route: 048
  5. GABAPENTIN [Concomitant]
     Active Substance: GABAPENTIN
     Indication: Product used for unknown indication
     Dosage: THREE DIVIDED DOSES
     Route: 048
  6. VENLAFAXINE [Concomitant]
     Active Substance: VENLAFAXINE HYDROCHLORIDE
     Indication: Product used for unknown indication
     Route: 048

REACTIONS (1)
  - Anticholinergic syndrome [Recovered/Resolved]
